FAERS Safety Report 17752169 (Version 1)
Quarter: 2020Q2

REPORT INFORMATION
  Report Type: Report from Study
  Country: PL (occurrence: PL)
  Receive Date: 20200506
  Receipt Date: 20200506
  Transmission Date: 20200714
  Serious: Yes (Death)
  Sender: FDA-Public Use
  Company Number: PL-MYLANLABS-2020M1044215

PATIENT

DRUGS (1)
  1. AZACITIDINE. [Suspect]
     Active Substance: AZACITIDINE
     Indication: LEUKAEMIA
     Dosage: STANDARD DOSE OF 75 MG/M 2  CYCLE FOR 7 DAYS
     Route: 058

REACTIONS (2)
  - Skin infection [Fatal]
  - Soft tissue infection [Fatal]
